APPROVED DRUG PRODUCT: OXYCODONE HYDROCHLORIDE
Active Ingredient: OXYCODONE HYDROCHLORIDE
Strength: 5MG/5ML
Dosage Form/Route: SOLUTION;ORAL
Application: A212429 | Product #001
Applicant: AUROLIFE PHARMA LLC
Approved: Jan 27, 2020 | RLD: No | RS: No | Type: DISCN